FAERS Safety Report 6265006-9 (Version None)
Quarter: 2009Q3

REPORT INFORMATION
  Report Type: 
  Country: None (occurrence: None)
  Receive Date: 20090713
  Receipt Date: 20090706
  Transmission Date: 20100115
  Serious: Yes (Hospitalization)
  Sender: FDA-Public Use
  Company Number: US-JNJFOC-20090700708

PATIENT
  Sex: Female

DRUGS (22)
  1. TYLENOL [Suspect]
  2. TYLENOL [Suspect]
     Indication: BACK PAIN
  3. PHENERGAN [Concomitant]
  4. AMOXICILLIN [Concomitant]
     Indication: HAEMATURIA
  5. HYDROCHLOROTHIAZIDE [Concomitant]
  6. SINGULAIR [Concomitant]
  7. LORATADINE [Concomitant]
  8. NEXIUM [Concomitant]
  9. CYMBALTA [Concomitant]
  10. CALCIUM [Concomitant]
  11. VITAMIN [Concomitant]
  12. VALIUM [Concomitant]
  13. XANAX [Concomitant]
  14. NORDIAZEPAM [Concomitant]
  15. OXAZEPAM [Concomitant]
  16. TEMAZEPAM [Concomitant]
  17. MORPHINE [Concomitant]
  18. IBUPROFEN [Concomitant]
  19. CYCLOBENZAPRINE [Concomitant]
  20. CAFFEINE [Concomitant]
  21. THEOBROMINE [Concomitant]
  22. DURAGESIC-100 [Concomitant]
     Indication: BACK PAIN

REACTIONS (2)
  - DRUG TOXICITY [None]
  - TRANSAMINASES INCREASED [None]
